FAERS Safety Report 7950206-X (Version None)
Quarter: 2011Q4

REPORT INFORMATION
  Report Type: 
  Country: None (occurrence: None)
  Receive Date: 20111130
  Receipt Date: 20111118
  Transmission Date: 20120403
  Serious: No
  Sender: FDA-Public Use
  Company Number: US-B.I. PHARMACEUTICALS,INC./RIDGEFIELD-2011-BP-22661BP

PATIENT
  Sex: Female
  Weight: 62.14 kg

DRUGS (7)
  1. PRADAXA [Suspect]
     Indication: ATRIAL FIBRILLATION
  2. PRADAXA [Suspect]
     Indication: ATRIAL FLUTTER
     Dosage: 300 MG
     Route: 048
     Dates: start: 20110525, end: 20110601
  3. LANOXIN [Concomitant]
     Dosage: 0.125 MG
     Dates: start: 20110525
  4. MULTAQ [Concomitant]
     Dosage: 800 MG
     Dates: start: 20110525, end: 20110630
  5. OMEPRAZOLE [Concomitant]
  6. ESTRADIOL [Concomitant]
  7. CARDIZEM CD [Concomitant]
     Dosage: 240 MG
     Dates: end: 20110601

REACTIONS (6)
  - MYALGIA [None]
  - GAIT DISTURBANCE [None]
  - DRUG INTOLERANCE [None]
  - FEELING ABNORMAL [None]
  - OEDEMA PERIPHERAL [None]
  - ERYTHEMA [None]
